FAERS Safety Report 14700924 (Version 1)
Quarter: 2018Q1

REPORT INFORMATION
  Report Type: Spontaneous
  Country: US (occurrence: US)
  Receive Date: 20180328
  Receipt Date: 20180328
  Transmission Date: 20180509
  Serious: Yes (Hospitalization)
  Sender: FDA-Public Use
  Company Number: None

PATIENT
  Age: 43 Year
  Sex: Female

DRUGS (20)
  1. CRANBERRY. [Concomitant]
     Active Substance: CRANBERRY
  2. VITAMIN D3 [Concomitant]
     Active Substance: CHOLECALCIFEROL
  3. VITAMIN B12 [Concomitant]
     Active Substance: CYANOCOBALAMIN
  4. COQ10 [Concomitant]
     Active Substance: UBIDECARENONE
  5. LYRICA [Concomitant]
     Active Substance: PREGABALIN
  6. HYDROCOD [Concomitant]
  7. METHOTREXATE. [Concomitant]
     Active Substance: METHOTREXATE
  8. NAPROSYN [Concomitant]
     Active Substance: NAPROXEN
  9. FOLIC ACID. [Concomitant]
     Active Substance: FOLIC ACID
  10. GLUCOSAMINE [Concomitant]
     Active Substance: GLUCOSAMINE
  11. SALMON OIL [Concomitant]
     Active Substance: FISH OIL
  12. NAPROXEN. [Concomitant]
     Active Substance: NAPROXEN
  13. DICLOFENAC [Concomitant]
     Active Substance: DICLOFENAC
  14. CYCLOBENZAPRINE. [Concomitant]
     Active Substance: CYCLOBENZAPRINE
  15. LEFLUNOMIDE. [Concomitant]
     Active Substance: LEFLUNOMIDE
  16. PROMETHAZINE [Concomitant]
     Active Substance: PROMETHAZINE\PROMETHAZINE HYDROCHLORIDE
  17. HUMIRA [Suspect]
     Active Substance: ADALIMUMAB
     Indication: RHEUMATOID ARTHRITIS
     Route: 058
     Dates: start: 20161014
  18. HYDROCHLOR [Concomitant]
  19. PREDNISONE. [Concomitant]
     Active Substance: PREDNISONE
  20. LYRICA [Concomitant]
     Active Substance: PREGABALIN

REACTIONS (1)
  - Surgery [None]

NARRATIVE: CASE EVENT DATE: 20180315
